FAERS Safety Report 9953784 (Version 1)
Quarter: 2014Q1

REPORT INFORMATION
  Report Type: Report from Study
  Country: DE (occurrence: DE)
  Receive Date: 20140304
  Receipt Date: 20140304
  Transmission Date: 20141002
  Serious: Yes (Hospitalization)
  Sender: FDA-Public Use
  Company Number: DE-ABBVIE-14P-062-1206468-00

PATIENT
  Sex: Female

DRUGS (5)
  1. HUMIRA [Suspect]
     Indication: RHEUMATOID ARTHRITIS
     Route: 058
     Dates: start: 20130913, end: 20140111
  2. CORTISONE [Concomitant]
     Indication: RHEUMATOID ARTHRITIS
  3. METFORMIN [Concomitant]
     Indication: DIABETES MELLITUS
  4. L-THYROXIN [Concomitant]
     Indication: THYROID DISORDER
  5. BISOPROLOL [Concomitant]
     Indication: HYPERTENSION

REACTIONS (2)
  - Arthropathy [Recovering/Resolving]
  - Drug ineffective [Unknown]
